FAERS Safety Report 16101559 (Version 1)
Quarter: 2019Q1

REPORT INFORMATION
  Report Type: Report from Study
  Country: FR (occurrence: FR)
  Receive Date: 20190321
  Receipt Date: 20190321
  Transmission Date: 20190418
  Serious: Yes (Death, Hospitalization)
  Sender: FDA-Public Use
  Company Number: FR-NAPPMUNDI-GBR-2019-0065143

PATIENT
  Age: 54 Year
  Sex: Male
  Weight: 112.2 kg

DRUGS (4)
  1. SUTENT [Suspect]
     Active Substance: SUNITINIB MALATE
     Dosage: 50 MG, CYCLIC (DAILY, 4 WEEKS ON, 2 WEEKS OFF)
     Route: 065
     Dates: start: 20160820
  2. OXYCONTIN [Suspect]
     Active Substance: OXYCODONE HYDROCHLORIDE
     Indication: PRODUCT USED FOR UNKNOWN INDICATION
     Dosage: UNK
     Route: 065
  3. SUTENT [Suspect]
     Active Substance: SUNITINIB MALATE
     Indication: METASTATIC RENAL CELL CARCINOMA
     Dosage: 50 MG, DAILY
     Route: 065
     Dates: start: 20160913, end: 20160922
  4. SUTENT [Suspect]
     Active Substance: SUNITINIB MALATE
     Dosage: 50 MG, CYCLIC (DAILY, 4 WEEKS ON, 2 WEEKS OFF)
     Route: 065
     Dates: start: 20160622

REACTIONS (6)
  - Neoplasm progression [Fatal]
  - Asthenia [Fatal]
  - Dyspnoea [Fatal]
  - Ischaemic stroke [Fatal]
  - Yellow skin [Fatal]
  - Pneumonia [Fatal]

NARRATIVE: CASE EVENT DATE: 20160819
